FAERS Safety Report 25315696 (Version 1)
Quarter: 2025Q2

REPORT INFORMATION
  Report Type: Report from Study
  Country: US (occurrence: US)
  Receive Date: 20250515
  Receipt Date: 20250515
  Transmission Date: 20250716
  Serious: Yes (Other)
  Sender: BIOGEN
  Company Number: US-BIOGEN-2025BI01310622

PATIENT
  Sex: Female

DRUGS (1)
  1. TYSABRI [Suspect]
     Active Substance: NATALIZUMAB
     Indication: Multiple sclerosis
     Route: 050
     Dates: start: 20200409, end: 20210818

REACTIONS (3)
  - Diabetes mellitus [Unknown]
  - Renal failure [Unknown]
  - Incontinence [Unknown]
